FAERS Safety Report 23153374 (Version 1)
Quarter: 2023Q4

REPORT INFORMATION
  Report Type: Spontaneous
  Country: US (occurrence: None)
  Receive Date: 20231106
  Receipt Date: 20231106
  Transmission Date: 20240110
  Serious: Yes (Other)
  Sender: FDA-Public Use
  Company Number: None

PATIENT
  Age: 62 Year
  Sex: Female

DRUGS (1)
  1. POMALYST [Suspect]
     Active Substance: POMALIDOMIDE
     Indication: Plasma cell myeloma
     Dosage: OTHER QUANTITY : 4MG3MGDOSEST11/202;?FREQUENCY : DAILY;?
     Route: 048
     Dates: start: 20230720

REACTIONS (2)
  - Therapy change [None]
  - Dizziness [None]

NARRATIVE: CASE EVENT DATE: 20231106
